FAERS Safety Report 5084410-8 (Version None)
Quarter: 2006Q3

REPORT INFORMATION
  Report Type: 
  Country: None (occurrence: None)
  Receive Date: 20060821
  Receipt Date: 20060413
  Transmission Date: 20061208
  Serious: Yes (Other)
  Sender: FDA-Public Use
  Company Number: US-GLAXOSMITHKLINE-A0601660A

PATIENT
  Age: 78 Year
  Sex: Male
  Weight: 80 kg

DRUGS (9)
  1. COREG [Suspect]
     Dosage: 37.5MG TWICE PER DAY
     Route: 048
     Dates: start: 20051119
  2. LIPITOR [Concomitant]
     Indication: CARDIOMYOPATHY
     Dosage: 10MG PER DAY
     Route: 048
  3. COUMADIN [Concomitant]
     Indication: ATRIAL FIBRILLATION
     Dosage: 5MG PER DAY
     Route: 048
  4. SINGULAIR [Concomitant]
     Dosage: 10MG PER DAY
     Route: 048
  5. LASIX [Concomitant]
     Dosage: 20MG TWICE PER DAY
     Route: 048
  6. MICARDIS [Concomitant]
     Indication: HYPERTENSION
     Dosage: 20MG TWICE PER DAY
     Route: 048
  7. FLONASE [Concomitant]
     Route: 045
  8. ADVAIR DISKUS 100/50 [Concomitant]
     Indication: CHRONIC OBSTRUCTIVE PULMONARY DISEASE
  9. TYLENOL EXTRA STRENGTH [Concomitant]
     Indication: HEADACHE
     Route: 048

REACTIONS (4)
  - BLINDNESS UNILATERAL [None]
  - FATIGUE [None]
  - MUSCULAR WEAKNESS [None]
  - OCULAR MYASTHENIA [None]
